FAERS Safety Report 7435245-X (Version None)
Quarter: 2011Q2

REPORT INFORMATION
  Report Type: 
  Country: None (occurrence: None)
  Receive Date: 20110425
  Receipt Date: 20110414
  Transmission Date: 20111010
  Serious: No
  Sender: FDA-Public Use
  Company Number: DE-ASTRAZENECA-2011SE22712

PATIENT
  Sex: Male
  Weight: 100 kg

DRUGS (2)
  1. SEROQUEL [Suspect]
     Dosage: 300-500 MG DAILY
     Route: 048
     Dates: start: 20030101, end: 20110101
  2. SEROQUEL [Suspect]
     Indication: BIPOLAR DISORDER
     Route: 048
     Dates: end: 20110101

REACTIONS (2)
  - LEUKOPENIA [None]
  - TIC [None]
